FAERS Safety Report 8238597-6 (Version None)
Quarter: 2012Q1

REPORT INFORMATION
  Report Type: 
  Country: None (occurrence: None)
  Receive Date: 20120327
  Receipt Date: 20120320
  Transmission Date: 20120608
  Serious: Yes (Other)
  Sender: FDA-Public Use
  Company Number: US-PFIZER INC-2012054048

PATIENT
  Sex: Female
  Weight: 58.503 kg

DRUGS (6)
  1. ATORVASTATIN CALCIUM [Suspect]
     Indication: BLOOD CHOLESTEROL
     Dosage: 20 MG, UNK
     Dates: start: 20120208
  2. LIPITOR [Suspect]
     Indication: ILL-DEFINED DISORDER
  3. CLONAZEPAM [Concomitant]
     Indication: SLEEP DISORDER
     Dosage: 2 MG, DAILY IN THE EVENING
  4. LIPITOR [Suspect]
     Indication: BLOOD CHOLESTEROL
     Dosage: 20 MG, DAILY
  5. ATORVASTATIN CALCIUM [Suspect]
     Indication: ILL-DEFINED DISORDER
  6. RANIBIZUMAB [Concomitant]
     Indication: MACULAR DEGENERATION
     Dosage: UNK, EVERY 3 MONTHS

REACTIONS (7)
  - SWOLLEN TONGUE [None]
  - OEDEMA MOUTH [None]
  - NECK PAIN [None]
  - SKIN IRRITATION [None]
  - HYPERSENSITIVITY [None]
  - SWELLING FACE [None]
  - GLOSSODYNIA [None]
